FAERS Safety Report 23675269 (Version 2)
Quarter: 2024Q2

REPORT INFORMATION
  Report Type: Spontaneous
  Country: US (occurrence: None)
  Receive Date: 20240327
  Receipt Date: 20240416
  Transmission Date: 20240716
  Serious: No
  Sender: FDA-Public Use
  Company Number: 2024A061259

PATIENT
  Sex: Male

DRUGS (1)
  1. BYDUREON BCISE [Suspect]
     Active Substance: EXENATIDE
     Dosage: 2.0MG UNKNOWN

REACTIONS (5)
  - General physical health deterioration [Unknown]
  - Parkinson^s disease [Unknown]
  - Cardiac disorder [Unknown]
  - Wrong technique in device usage process [Unknown]
  - Device malfunction [Unknown]
